FAERS Safety Report 4738735-3 (Version None)
Quarter: 2005Q3

REPORT INFORMATION
  Report Type: 
  Country: None (occurrence: None)
  Receive Date: 20050808
  Receipt Date: 20050808
  Transmission Date: 20060218
  Serious: No
  Sender: FDA-Public Use
  Company Number: None

PATIENT
  Age: 50 Year
  Sex: Male
  Weight: 77.1115 kg

DRUGS (2)
  1. SONATA [Suspect]
     Indication: SLEEP DISORDER
     Dosage: PM
  2. PRILOSEC [Concomitant]

REACTIONS (1)
  - DEAFNESS NEUROSENSORY [None]
